FAERS Safety Report 25177937 (Version 2)
Quarter: 2025Q2

REPORT INFORMATION
  Report Type: Spontaneous
  Country: RU (occurrence: RU)
  Receive Date: 20250409
  Receipt Date: 20250418
  Transmission Date: 20250717
  Serious: Yes (Other)
  Sender: PFIZER
  Company Number: RU-NOVPHSZ-PHHY2019RU102085

PATIENT
  Age: 3 Year
  Sex: Male

DRUGS (7)
  1. CYTARABINE [Suspect]
     Active Substance: CYTARABINE
     Indication: B-cell lymphoma
     Route: 065
  2. METHOTREXATE [Suspect]
     Active Substance: METHOTREXATE
     Indication: B-cell lymphoma
     Dosage: 5 MG/M2, 1X/DAY
     Route: 065
  3. DEXAMETHASONE [Suspect]
     Active Substance: DEXAMETHASONE
     Indication: B-cell lymphoma
     Route: 065
  4. VINCRISTINE [Suspect]
     Active Substance: VINCRISTINE
     Indication: B-cell lymphoma
     Route: 065
  5. IFOSFAMIDE [Suspect]
     Active Substance: IFOSFAMIDE
     Indication: B-cell lymphoma
     Route: 065
  6. VEPESID [Suspect]
     Active Substance: ETOPOSIDE
     Indication: B-cell lymphoma
     Route: 065
  7. RITUXIMAB [Concomitant]
     Active Substance: RITUXIMAB
     Indication: B-cell lymphoma
     Route: 065

REACTIONS (9)
  - Cellulitis [Recovered/Resolved]
  - Enterocolitis [Recovered/Resolved]
  - Oesophagitis [Recovered/Resolved]
  - Generalised oedema [Recovered/Resolved]
  - Cheilitis [Recovered/Resolved]
  - Bone marrow failure [Recovered/Resolved]
  - Lymphadenitis [Recovered/Resolved]
  - Dermatitis exfoliative [Recovered/Resolved]
  - Mucosal inflammation [Recovered/Resolved]
